FAERS Safety Report 4838276-9 (Version None)
Quarter: 2005Q4

REPORT INFORMATION
  Report Type: 
  Country: None (occurrence: None)
  Receive Date: 20051128
  Receipt Date: 20051115
  Transmission Date: 20060501
  Serious: Yes (Disabling, Other)
  Sender: FDA-Public Use
  Company Number: PHEH2005US12541

PATIENT
  Age: 35 Year
  Sex: Male
  Weight: 65.306 kg

DRUGS (1)
  1. TEGRETOL-XR [Suspect]
     Indication: CONVULSION
     Dosage: 200 MG, QID
     Route: 048

REACTIONS (4)
  - BACK INJURY [None]
  - CONVULSION [None]
  - DRUG INEFFECTIVE [None]
  - FALL [None]
